FAERS Safety Report 23865169 (Version 1)
Quarter: 2024Q2

REPORT INFORMATION
  Report Type: Report from Study
  Country: CA (occurrence: CA)
  Receive Date: 20240517
  Receipt Date: 20240517
  Transmission Date: 20240716
  Serious: Yes (Other)
  Sender: FDA-Public Use
  Company Number: CA-JNJFOC-20240345181

PATIENT
  Age: 24 Year
  Sex: Female

DRUGS (2)
  1. SIMPONI [Suspect]
     Active Substance: GOLIMUMAB
     Indication: Ankylosing spondylitis
     Dosage: : INJECT CONTENTS OF 2 PENS SUBCUTANEOUSLY AT WEEK 0 THEN INJECT 1 PEN SUBCUTANEOUSLY AT WEEK 2 AND
     Route: 058
     Dates: start: 20131018
  2. SIMPONI [Suspect]
     Active Substance: GOLIMUMAB
     Indication: Crohn^s disease
     Route: 058

REACTIONS (13)
  - Sialoadenitis [Recovered/Resolved]
  - Folliculitis [Not Recovered/Not Resolved]
  - Eye movement disorder [Recovered/Resolved]
  - Hypoaesthesia [Recovered/Resolved]
  - Paraesthesia [Recovered/Resolved]
  - Fatigue [Recovered/Resolved]
  - Grip strength decreased [Recovered/Resolved]
  - Facial paresis [Recovered/Resolved]
  - Asthenopia [Unknown]
  - Sinus disorder [Recovering/Resolving]
  - Nasal polyps [Unknown]
  - Infection [Not Recovered/Not Resolved]
  - Blood magnesium decreased [Unknown]

NARRATIVE: CASE EVENT DATE: 20240101
